FAERS Safety Report 16740638 (Version 2)
Quarter: 2019Q4

REPORT INFORMATION
  Report Type: Report from Study
  Country: ES (occurrence: ES)
  Receive Date: 20190826
  Receipt Date: 20191126
  Transmission Date: 20200122
  Serious: Yes (Other)
  Sender: FDA-Public Use
  Company Number: ES-ROCHE-2391315

PATIENT

DRUGS (5)
  1. PEMBROLIZUMAB. [Suspect]
     Active Substance: PEMBROLIZUMAB
     Indication: NEOPLASM MALIGNANT
     Route: 065
  2. NIVOLUMAB [Suspect]
     Active Substance: NIVOLUMAB
     Indication: NEOPLASM MALIGNANT
     Route: 065
  3. ATEZOLIZUMAB. [Suspect]
     Active Substance: ATEZOLIZUMAB
     Indication: NEOPLASM MALIGNANT
     Route: 041
  4. EPACADOSTAT [Suspect]
     Active Substance: EPACADOSTAT
     Indication: NEOPLASM MALIGNANT
     Route: 065
  5. IPILIMUMAB [Suspect]
     Active Substance: IPILIMUMAB
     Indication: NEOPLASM MALIGNANT
     Route: 065

REACTIONS (20)
  - Hypersensitivity vasculitis [Unknown]
  - Tendonitis [Unknown]
  - Myalgia [Unknown]
  - Rotator cuff syndrome [Unknown]
  - Tenosynovitis [Unknown]
  - Joint effusion [Unknown]
  - Polymyalgia rheumatica [Unknown]
  - Arthritis [Unknown]
  - Arthralgia [Unknown]
  - Synovitis [Unknown]
  - Fibromyalgia [Unknown]
  - Osteoarthritis [Unknown]
  - Paraesthesia [Unknown]
  - Psoriasis [Unknown]
  - Systemic lupus erythematosus [Unknown]
  - Vasculitis [Unknown]
  - Spondylitis [Unknown]
  - Gout [Unknown]
  - Chondrocalcinosis [Unknown]
  - Dysaesthesia [Unknown]
